FAERS Safety Report 24001038 (Version 1)
Quarter: 2024Q2

REPORT INFORMATION
  Report Type: Spontaneous
  Country: US (occurrence: None)
  Receive Date: 20240621
  Receipt Date: 20240621
  Transmission Date: 20240715
  Serious: Yes (Hospitalization)
  Sender: FDA-Public Use
  Company Number: None

PATIENT
  Sex: Female

DRUGS (3)
  1. SILDENAFIL CITRATE [Suspect]
     Active Substance: SILDENAFIL CITRATE
     Indication: Pulmonary arterial hypertension
     Dosage: 20MG TID PO?
     Route: 048
     Dates: start: 202201
  2. AMBRISENTAN [Suspect]
     Active Substance: AMBRISENTAN
     Indication: Pulmonary arterial hypertension
     Dosage: 10MG DAILY PO
     Route: 048
     Dates: start: 202003
  3. REMODULIN [Concomitant]
     Active Substance: TREPROSTINIL

REACTIONS (1)
  - Dehydration [None]

NARRATIVE: CASE EVENT DATE: 20240618
